FAERS Safety Report 11682852 (Version 1)
Quarter: 2015Q4

REPORT INFORMATION
  Report Type: Report from Study
  Country: US (occurrence: US)
  Receive Date: 20151029
  Receipt Date: 20151029
  Transmission Date: 20160304
  Serious: Yes (Other)
  Sender: FDA-Public Use
  Company Number: PHEH2015US021681

PATIENT
  Age: 32 Year
  Sex: Female
  Weight: 79.37 kg

DRUGS (4)
  1. EXTAVIA [Suspect]
     Active Substance: INTERFERON BETA-1B
     Dosage: WEEKS 3-4: 0.125MG (0.5 ML), EVERY OTHER DAY
     Route: 058
  2. EXTAVIA [Suspect]
     Active Substance: INTERFERON BETA-1B
     Dosage: WEEKS 7+: 0.25MG (1 ML), EVERY OTHER DAY
     Route: 058
  3. EXTAVIA [Suspect]
     Active Substance: INTERFERON BETA-1B
     Indication: MULTIPLE SCLEROSIS
     Dosage: WEEKS 1-2: 0.0625 MG (0.25 ML)EVERY OTHER DAY
     Route: 058
  4. EXTAVIA [Suspect]
     Active Substance: INTERFERON BETA-1B
     Dosage: WEEKS 5-6: 0.1875 MG (0.75 ML) EVERY OTHER DAY
     Route: 058

REACTIONS (5)
  - Multiple sclerosis relapse [Recovered/Resolved]
  - Cognitive disorder [Unknown]
  - Body temperature increased [Unknown]
  - Vision blurred [Unknown]
  - Influenza like illness [Unknown]

NARRATIVE: CASE EVENT DATE: 20151011
